FAERS Safety Report 18913308 (Version 3)
Quarter: 2021Q4

REPORT INFORMATION
  Report Type: Spontaneous
  Country: US (occurrence: US)
  Receive Date: 20210219
  Receipt Date: 20211226
  Transmission Date: 20220303
  Serious: Yes (Other)
  Sender: FDA-Public Use
  Company Number: US-JNJFOC-20210224593

PATIENT
  Age: 77 Year
  Sex: Female

DRUGS (6)
  1. ELMIRON [Suspect]
     Active Substance: PENTOSAN POLYSULFATE SODIUM
     Indication: Cystitis interstitial
     Route: 048
     Dates: start: 20130125, end: 20180427
  2. ELMIRON [Suspect]
     Active Substance: PENTOSAN POLYSULFATE SODIUM
     Route: 048
     Dates: start: 20190807, end: 202007
  3. IMVEXXY [Concomitant]
     Active Substance: ESTRADIOL
     Indication: Hormone replacement therapy
     Dates: end: 2020
  4. STELARA [Concomitant]
     Active Substance: USTEKINUMAB
     Indication: Crohn^s disease
     Dates: start: 20200525
  5. LOSARTAN [Concomitant]
     Active Substance: LOSARTAN
     Indication: Cardiac disorder
     Dates: end: 2020
  6. ENTYVIO [Concomitant]
     Active Substance: VEDOLIZUMAB
     Indication: Crohn^s disease
     Dates: end: 20200128

REACTIONS (2)
  - Age-related macular degeneration [Not Recovered/Not Resolved]
  - Maculopathy [Not Recovered/Not Resolved]

NARRATIVE: CASE EVENT DATE: 20200101
